FAERS Safety Report 17717779 (Version 3)
Quarter: 2020Q2

REPORT INFORMATION
  Report Type: Spontaneous
  Country: DK (occurrence: DK)
  Receive Date: 20200428
  Receipt Date: 20200604
  Transmission Date: 20200714
  Serious: Yes (Life-Threatening)
  Sender: FDA-Public Use
  Company Number: DK-BAYER-2020-063022

PATIENT
  Age: 25 Year
  Sex: Female

DRUGS (4)
  1. KYLEENA [Suspect]
     Active Substance: LEVONORGESTREL
     Indication: CONTRACEPTION
     Dosage: 17.5 ?G PER DAY, CONTINUOUSLY
     Route: 015
     Dates: start: 20170127
  2. ALK 553 HUNDEHAAR [Concomitant]
     Indication: HYPERSENSITIVITY
     Dosage: STYRKE: 100.000 SQ-U/ML. DOSIS: UKENDT.
     Route: 058
     Dates: start: 20160817
  3. ALK 553 HUNDEHAAR [Concomitant]
     Indication: HYPERSENSITIVITY
     Dosage: STYRKE: 100.000 SQ-U/ML. DOSIS: UKENDT.
     Route: 058
     Dates: start: 20160817
  4. KYLEENA [Suspect]
     Active Substance: LEVONORGESTREL

REACTIONS (10)
  - Salpingectomy [Unknown]
  - Haemoperitoneum [Recovered/Resolved]
  - Vaginal haemorrhage [Unknown]
  - Dizziness [Recovered/Resolved]
  - Abdominal pain lower [Recovered/Resolved]
  - Drug ineffective [Unknown]
  - Ectopic pregnancy with contraceptive device [Recovered/Resolved]
  - Ectopic pregnancy with contraceptive device [Recovered/Resolved]
  - Abdominal distension [Unknown]
  - Intra-abdominal haemorrhage [Unknown]

NARRATIVE: CASE EVENT DATE: 201912
